FAERS Safety Report 4459534-6 (Version None)
Quarter: 2004Q3

REPORT INFORMATION
  Report Type: 
  Country: None (occurrence: None)
  Receive Date: 20040910
  Receipt Date: 20040609
  Transmission Date: 20050211
  Serious: No
  Sender: FDA-Public Use
  Company Number: 2004218773US

PATIENT

DRUGS (1)
  1. BEXTRA [Suspect]
     Dosage: 10 MG

REACTIONS (1)
  - AMNESIA [None]
